FAERS Safety Report 11161693 (Version 1)
Quarter: 2015Q2

REPORT INFORMATION
  Report Type: Spontaneous
  Country: US (occurrence: US)
  Receive Date: 20150604
  Receipt Date: 20150604
  Transmission Date: 20150821
  Serious: No
  Sender: FDA-Public Use
  Company Number: US-SA-2014SA093822

PATIENT
  Sex: Female

DRUGS (7)
  1. LYRICA [Concomitant]
     Active Substance: PREGABALIN
  2. POTASSIUM [Concomitant]
     Active Substance: POTASSIUM
  3. LANTUS SOLOSTAR [Suspect]
     Active Substance: INSULIN GLARGINE
     Indication: DIABETES MELLITUS
     Dosage: DOSE:70 UNIT(S)
     Route: 065
     Dates: start: 2013
  4. ANTIHYPERTENSIVES [Concomitant]
     Active Substance: UNSPECIFIED INGREDIENT
  5. NOVOLOG [Concomitant]
     Active Substance: INSULIN ASPART
  6. SOLOSTAR [Concomitant]
     Active Substance: DEVICE
  7. WATER PILLS [Concomitant]
     Active Substance: UNSPECIFIED INGREDIENT

REACTIONS (5)
  - Peripheral swelling [Unknown]
  - Incorrect product storage [Unknown]
  - Hypoacusis [Unknown]
  - Hyperglycaemia [Unknown]
  - Weight increased [Unknown]
